FAERS Safety Report 6591165-4 (Version None)
Quarter: 2010Q1

REPORT INFORMATION
  Report Type: 
  Country: None (occurrence: None)
  Receive Date: 20100219
  Receipt Date: 20100215
  Transmission Date: 20100710
  Serious: Yes (Other)
  Sender: FDA-Public Use
  Company Number: US-JNJCH-2010004103

PATIENT
  Age: 67 Year
  Sex: Male
  Weight: 109.8 kg

DRUGS (6)
  1. ROLAIDS TAB [Suspect]
     Indication: DYSPEPSIA
     Dosage: TEXT:THREE TABLETS ONCE A DAY
     Route: 048
  2. SPIRIVA [Concomitant]
     Indication: CHRONIC OBSTRUCTIVE PULMONARY DISEASE
     Dosage: TEXT:UNSPECIFIED
     Route: 055
  3. ADVAIR DISKUS 100/50 [Concomitant]
     Indication: EMPHYSEMA
     Dosage: TEXT:UNSPECIFIED
     Route: 065
  4. MUCINEX [Concomitant]
     Indication: PULMONARY CONGESTION
     Dosage: TEXT:UNSPECIFIED
     Route: 065
  5. SORIATANE [Concomitant]
     Indication: PSORIASIS
     Dosage: TEXT:UNSPECIFIED
     Route: 065
  6. ALBUTEROL [Concomitant]
     Indication: EMPHYSEMA
     Dosage: TEXT:UNSPECIFIED
     Route: 055

REACTIONS (4)
  - HAEMOPTYSIS [None]
  - PRODUCT ODOUR ABNORMAL [None]
  - PRODUCT QUALITY ISSUE [None]
  - PRODUCT TASTE ABNORMAL [None]
